FAERS Safety Report 8682941 (Version 3)
Quarter: 2012Q4

REPORT INFORMATION
  Report Type: 
  Country: FR (occurrence: FR)
  Receive Date: 20120725
  Receipt Date: 20120926
  Transmission Date: 20130627
  Serious: Yes (Hospitalization)
  Sender: FDA-Public Use
  Company Number: FR-GLAXOSMITHKLINE-B0812384A

PATIENT
  Age: 12 Year
  Sex: Female
  Weight: 42 kg

DRUGS (12)
  1. ATRIANCE [Suspect]
     Indication: T-CELL TYPE ACUTE LEUKAEMIA
     Dosage: 820MG Single dose
     Route: 042
     Dates: start: 20120618, end: 20120622
  2. ETOPOSIDE [Concomitant]
     Indication: T-CELL TYPE ACUTE LEUKAEMIA
     Dosage: 130MG Per day
     Route: 042
     Dates: start: 20120618, end: 20120620
  3. NEURONTIN [Concomitant]
     Dosage: 100MG Twice per day
  4. NALBUPHINE [Concomitant]
     Route: 042
     Dates: start: 20120624, end: 20120702
  5. ENDOXAN [Concomitant]
     Dosage: 300MG Per day
     Route: 042
     Dates: start: 20120618, end: 20120620
  6. URSOLVAN [Concomitant]
     Route: 048
     Dates: start: 20120620
  7. LEDERTREXATE [Concomitant]
     Route: 037
     Dates: end: 20120615
  8. ARACYTINE [Concomitant]
     Dosage: 30MG Cyclic
     Route: 037
     Dates: end: 20120615
  9. PURINETHOL [Concomitant]
     Dosage: 25MG Per day
     Route: 048
  10. METHOTREXATE [Concomitant]
     Indication: T-CELL TYPE ACUTE LEUKAEMIA
     Dosage: 12MG Cyclic
     Route: 037
     Dates: start: 20120608, end: 20120615
  11. ZELITREX [Concomitant]
     Dates: start: 201009
  12. MEDROL [Concomitant]
     Dosage: 10MG Cyclic
     Route: 037
     Dates: start: 20120608, end: 20120615

REACTIONS (16)
  - Guillain-Barre syndrome [Not Recovered/Not Resolved]
  - Peripheral motor neuropathy [Not Recovered/Not Resolved]
  - Peripheral sensory neuropathy [Not Recovered/Not Resolved]
  - Pollakiuria [Unknown]
  - Pain in extremity [Unknown]
  - Muscle tightness [Not Recovered/Not Resolved]
  - Hypoaesthesia [Not Recovered/Not Resolved]
  - Paraesthesia [Not Recovered/Not Resolved]
  - Loss of proprioception [Not Recovered/Not Resolved]
  - Dysstasia [Not Recovered/Not Resolved]
  - Grip strength decreased [Not Recovered/Not Resolved]
  - Abasia [Not Recovered/Not Resolved]
  - Faecal incontinence [Not Recovered/Not Resolved]
  - Urinary incontinence [Not Recovered/Not Resolved]
  - Hyporeflexia [Not Recovered/Not Resolved]
  - Infusion related reaction [None]
